FAERS Safety Report 10370499 (Version 1)
Quarter: 2014Q1

REPORT INFORMATION
  Report Type: Spontaneous
  Country: US (occurrence: None)
  Receive Date: 20140306
  Receipt Date: 20140306
  Transmission Date: 20141002
  Serious: Yes (Hospitalization)
  Sender: FDA-Public Use
  Company Number: 163-21880-13093958

PATIENT
  Age: 57 Year
  Sex: Female

DRUGS (2)
  1. REVLIMID [Suspect]
     Indication: PLASMA CELL MYELOMA
     Dates: start: 20110502
  2. BLOOD TRANSFUSION (BLOOD TRANSFUSION, AUXILLIARY PRODUCTS) (INJECTION FOR INFUSION) [Concomitant]

REACTIONS (1)
  - Pneumonia [None]
